FAERS Safety Report 13412878 (Version 2)
Quarter: 2017Q4

REPORT INFORMATION
  Report Type: Spontaneous
  Country: US (occurrence: US)
  Receive Date: 20170406
  Receipt Date: 20171123
  Transmission Date: 20180320
  Serious: No
  Sender: FDA-Public Use
  Company Number: US-JNJFOC-20170312471

PATIENT
  Sex: Male

DRUGS (7)
  1. RISPERIDONE. [Suspect]
     Active Substance: RISPERIDONE
     Indication: PRODUCT USED FOR UNKNOWN INDICATION
     Route: 048
  2. RISPERDAL [Suspect]
     Active Substance: RISPERIDONE
     Indication: THINKING ABNORMAL
     Dosage: RISPERIDONE 3 MG
     Route: 048
     Dates: start: 20091209
  3. RISPERDAL [Suspect]
     Active Substance: RISPERIDONE
     Indication: THINKING ABNORMAL
     Dosage: 2, 3 AND 4 MG
     Route: 048
     Dates: start: 20070804, end: 20070809
  4. RISPERDAL [Suspect]
     Active Substance: RISPERIDONE
     Indication: PSYCHOTIC DISORDER
     Dosage: VARIABLE DOSES OF RISPERIDONE 1 MG, 2MG AND 3 MG
     Route: 048
     Dates: start: 20060825, end: 20070201
  5. RISPERDAL [Suspect]
     Active Substance: RISPERIDONE
     Indication: THINKING ABNORMAL
     Dosage: VARIABLE DOSES OF RISPERIDONE 1 MG, 2MG AND 3 MG
     Route: 048
     Dates: start: 20060825, end: 20070201
  6. RISPERDAL [Suspect]
     Active Substance: RISPERIDONE
     Indication: PSYCHOTIC DISORDER
     Dosage: RISPERIDONE 3 MG
     Route: 048
     Dates: start: 20091209
  7. RISPERDAL [Suspect]
     Active Substance: RISPERIDONE
     Indication: PSYCHOTIC DISORDER
     Dosage: 2, 3 AND 4 MG
     Route: 048
     Dates: start: 20070804, end: 20070809

REACTIONS (2)
  - Emotional disorder [Unknown]
  - Gynaecomastia [Unknown]
